FAERS Safety Report 5421821-2 (Version None)
Quarter: 2007Q3

REPORT INFORMATION
  Report Type: 
  Country: None (occurrence: None)
  Receive Date: 20070820
  Receipt Date: 20070810
  Transmission Date: 20080115
  Serious: Yes (Hospitalization)
  Sender: FDA-Public Use
  Company Number: 163-20785-07070973

PATIENT
  Age: 66 Year
  Sex: Male
  Weight: 79.8331 kg

DRUGS (13)
  1. THALOMID [Suspect]
     Indication: MULTIPLE MYELOMA
     Dosage: 200 MG, QD, ORAL
     Route: 048
     Dates: start: 20070605
  2. DEXAMETHASONE TAB [Concomitant]
  3. NEXIUM [Concomitant]
  4. ATIVAN [Concomitant]
  5. LORTAB [Concomitant]
  6. FLEXERIL [Concomitant]
  7. LASIX [Concomitant]
  8. POTASSIUM CHLORIDE [Concomitant]
  9. CORDARONE [Concomitant]
  10. ASCORBIC ACID [Concomitant]
  11. ZINC (ZINC) [Concomitant]
  12. MILK OF MAGNESIUM (MAGNESIUM HYDROXIDE) [Concomitant]
  13. ROBITUSSIN (GUAIFENESIN) [Concomitant]

REACTIONS (3)
  - DECUBITUS ULCER [None]
  - SEPSIS [None]
  - WOUND INFECTION [None]
